FAERS Safety Report 7781078-4 (Version None)
Quarter: 2011Q3

REPORT INFORMATION
  Report Type: 
  Country: None (occurrence: None)
  Receive Date: 20110927
  Receipt Date: 20110922
  Transmission Date: 20111222
  Serious: Yes (Other)
  Sender: FDA-Public Use
  Company Number: PHHY2011CA84450

PATIENT
  Sex: Female

DRUGS (3)
  1. TYLENOL-500 [Concomitant]
     Dosage: UNK UKN, UNK
  2. ZOLEDRONOC ACID [Suspect]
     Indication: OSTEOPOROSIS
     Dosage: UNK UKN, UNK
     Route: 042
     Dates: start: 20100923
  3. ZOLEDRONOC ACID [Suspect]
     Dosage: UNK UKN, UNK
     Route: 042
     Dates: start: 20110921

REACTIONS (10)
  - DIARRHOEA [None]
  - EATING DISORDER [None]
  - DYSSTASIA [None]
  - MALAISE [None]
  - DYSURIA [None]
  - ABDOMINAL DISCOMFORT [None]
  - DIZZINESS [None]
  - BONE PAIN [None]
  - DIABETES MELLITUS [None]
  - HEADACHE [None]
